FAERS Safety Report 6707709-5 (Version None)
Quarter: 2010Q2

REPORT INFORMATION
  Report Type: 
  Country: None (occurrence: None)
  Receive Date: 20100428
  Receipt Date: 20100412
  Transmission Date: 20101027
  Serious: Yes (Hospitalization)
  Sender: FDA-Public Use
  Company Number: 2010001601

PATIENT
  Age: 51 Year
  Sex: Female

DRUGS (4)
  1. ERLOTINIB HYDROCHLORIDE [Suspect]
     Indication: HEAD AND NECK CANCER
     Dosage: 300 MG, DAY 2, ORAL, 150 MG, DAYS 3-17, ORAL
     Route: 048
     Dates: start: 20091126, end: 20100404
  2. ERLOTINIB HYDROCHLORIDE [Suspect]
     Indication: HEAD AND NECK CANCER
     Dosage: 300 MG, DAY 2, ORAL, 150 MG, DAYS 3-17, ORAL
     Route: 048
     Dates: start: 20091126, end: 20100404
  3. CISPLATIN [Suspect]
     Indication: HEAD AND NECK CANCER
     Dosage: 75 MG/M2, INTRAVENOUS
     Route: 042
     Dates: start: 20091125, end: 20100319
  4. PACLITAXEL [Suspect]
     Indication: HEAD AND NECK CANCER
     Dosage: 175 MG/M2, INTRAVENOUS
     Route: 042
     Dates: start: 20091125, end: 20100329

REACTIONS (5)
  - CELLULITIS [None]
  - HEAD AND NECK CANCER [None]
  - INFECTION [None]
  - MALIGNANT NEOPLASM PROGRESSION [None]
  - NOSE DEFORMITY [None]
